FAERS Safety Report 6129677-X (Version None)
Quarter: 2009Q1

REPORT INFORMATION
  Report Type: 
  Country: None (occurrence: None)
  Receive Date: 20090320
  Receipt Date: 20090312
  Transmission Date: 20090719
  Serious: Yes (Other)
  Sender: FDA-Public Use
  Company Number: 2009000635

PATIENT
  Age: 74 Year
  Sex: Female

DRUGS (4)
  1. MACUGEN [Suspect]
     Dosage: (0.3 MG),INTRA-VITREAL
     Dates: start: 20080903
  2. ASCORUTIN (ASCORUTIN) [Concomitant]
  3. VESSEL (SULODEXIDE) [Concomitant]
  4. VITAMIN E [Concomitant]

REACTIONS (2)
  - BLINDNESS TRANSIENT [None]
  - INTRAOCULAR PRESSURE INCREASED [None]
